FAERS Safety Report 24133305 (Version 2)
Quarter: 2024Q3

REPORT INFORMATION
  Report Type: Report from Study
  Country: US (occurrence: US)
  Receive Date: 20240724
  Receipt Date: 20240814
  Transmission Date: 20241017
  Serious: Yes (Hospitalization, Other)
  Sender: GILEAD
  Company Number: US-GILEAD-2024-0680853

PATIENT
  Sex: Female

DRUGS (16)
  1. AZTREONAM LYSINE [Suspect]
     Active Substance: AZTREONAM LYSINE
     Indication: Cystic fibrosis
     Dosage: INHALE 1 ML (75 MG) VIA ALTERA NEBULIZER AS INSTRUCTED THREE TIMES DAILY, EVERY OTHER MONTH
     Route: 055
  2. NUCALA [Concomitant]
     Active Substance: MEPOLIZUMAB
  3. ALBUTEROL SULFATE [Concomitant]
     Active Substance: ALBUTEROL SULFATE
  4. ALEVE [Concomitant]
     Active Substance: NAPROXEN SODIUM
  5. TYLENOL [Concomitant]
     Active Substance: ACETAMINOPHEN
  6. OMEPRAZOLE [Concomitant]
     Active Substance: OMEPRAZOLE
  7. ZOLOFT [Concomitant]
     Active Substance: SERTRALINE HYDROCHLORIDE
  8. ATORVASTATIN CALCIUM [Concomitant]
     Active Substance: ATORVASTATIN CALCIUM
  9. PULMICORT TURBUHALER [Concomitant]
     Active Substance: BUDESONIDE
  10. ALBUTEROL SULFATE [Concomitant]
     Active Substance: ALBUTEROL SULFATE
  11. MONTELUKAST SODIUM [Concomitant]
     Active Substance: MONTELUKAST SODIUM
  12. VANCOMYCIN [Concomitant]
     Active Substance: VANCOMYCIN
  13. LISINOPRIL [Concomitant]
     Active Substance: LISINOPRIL
  14. FLUTICASONE PROPIONATE [Concomitant]
     Active Substance: FLUTICASONE PROPIONATE
  15. GEMTESA [Concomitant]
     Active Substance: VIBEGRON
  16. NAPROXEN [Concomitant]
     Active Substance: NAPROXEN

REACTIONS (2)
  - Infection [Unknown]
  - Cystic fibrosis [Unknown]
